FAERS Safety Report 7807458-6 (Version None)
Quarter: 2011Q4

REPORT INFORMATION
  Report Type: 
  Country: None (occurrence: None)
  Receive Date: 20111011
  Receipt Date: 20111004
  Transmission Date: 20120403
  Serious: Yes (Other)
  Sender: FDA-Public Use
  Company Number: PHHY2011CA88683

PATIENT
  Sex: Female

DRUGS (17)
  1. ZOLEDRONOC ACID [Suspect]
     Dosage: 5 MG,
     Dates: start: 20111004
  2. XOLAIR [Concomitant]
  3. PREDNISONE [Concomitant]
  4. OXEZE [Concomitant]
  5. LACTULOSE [Concomitant]
  6. ZOLEDRONOC ACID [Suspect]
     Indication: OSTEOPOROSIS
     Dosage: 5 MG,
     Dates: start: 20100805
  7. CLONAZEPAM [Concomitant]
  8. SYMBICORT [Concomitant]
  9. VITAMIN D [Concomitant]
  10. NEXIUM [Concomitant]
  11. RASILEZ (ALISKIREN) [Concomitant]
  12. SPIRIVA [Concomitant]
  13. TERIZIDONE [Concomitant]
  14. ALVESCO [Concomitant]
  15. CALCIUM CARBONATE [Concomitant]
  16. VERAPAMIL [Concomitant]
  17. VENTOLIN [Concomitant]

REACTIONS (3)
  - COUGH [None]
  - RIB FRACTURE [None]
  - FOOT FRACTURE [None]
